FAERS Safety Report 7298991-7 (Version None)
Quarter: 2011Q1

REPORT INFORMATION
  Report Type: 
  Country: None (occurrence: None)
  Receive Date: 20110217
  Receipt Date: 20110214
  Transmission Date: 20110831
  Serious: Yes (Life-Threatening)
  Sender: FDA-Public Use
  Company Number: GB-B.I. PHARMACEUTICALS,INC./RIDGEFIELD-2009-UK-00011UK

PATIENT
  Age: 44 Year
  Sex: Female
  Weight: 123.2 kg

DRUGS (4)
  1. PERSANTIN AMPOULES (00015/0119) [Suspect]
     Indication: SCAN MYOCARDIAL PERFUSION
     Dosage: 56 MG
     Route: 042
     Dates: start: 20081217, end: 20081217
  2. NITROMIN [Concomitant]
     Indication: CHEST PAIN
     Dosage: AS NECESSARY
     Route: 060
     Dates: start: 20081124
  3. SIMVASTATIN [Concomitant]
     Indication: HYPERCHOLESTEROLAEMIA
     Dosage: 40 MG
     Route: 048
  4. OMEPRAZOLE [Concomitant]
     Dosage: 20 MG
     Route: 048

REACTIONS (2)
  - ANAPHYLACTIC REACTION [None]
  - ANGIOEDEMA [None]
